FAERS Safety Report 7180489-8 (Version None)
Quarter: 2010Q4

REPORT INFORMATION
  Report Type: 
  Country: None (occurrence: None)
  Receive Date: 20101221
  Receipt Date: 20101213
  Transmission Date: 20110411
  Serious: Yes (Hospitalization)
  Sender: FDA-Public Use
  Company Number: JP-AMGEN-JPNCT2010010217

PATIENT

DRUGS (10)
  1. PANITUMUMAB [Suspect]
     Indication: COLORECTAL CANCER
     Dosage: 372 MG, Q2WK
     Route: 041
     Dates: start: 20101124
  2. TOPOTECAN [Suspect]
     Indication: COLORECTAL CANCER
     Route: 041
     Dates: start: 20101124
  3. FLUOROURACIL [Suspect]
     Indication: COLORECTAL CANCER
     Route: 040
     Dates: start: 20101124
  4. FLUOROURACIL [Suspect]
     Route: 041
     Dates: start: 20101124
  5. BLOPRESS [Concomitant]
     Route: 048
  6. ISOVORIN [Concomitant]
     Indication: COLORECTAL CANCER
     Route: 041
     Dates: start: 20101124
  7. ASPIRIN [Concomitant]
     Route: 048
  8. PLAVIX [Concomitant]
     Route: 048
  9. ARTIST [Concomitant]
     Route: 048
  10. OMEPRAL [Concomitant]
     Route: 048

REACTIONS (2)
  - CEREBRAL INFARCTION [None]
  - WHITE BLOOD CELL COUNT DECREASED [None]
